FAERS Safety Report 14403943 (Version 4)
Quarter: 2018Q2

REPORT INFORMATION
  Report Type: Spontaneous
  Country: US (occurrence: US)
  Receive Date: 20180117
  Receipt Date: 20180608
  Transmission Date: 20180711
  Serious: No
  Sender: FDA-Public Use
  Company Number: US-NEUROCRINE BIOSCIENCES INC.-2017NBI01731

PATIENT
  Sex: Male
  Weight: 73.55 kg

DRUGS (11)
  1. LEVOTHYROXINE. [Concomitant]
     Active Substance: LEVOTHYROXINE
     Indication: THYROID DISORDER
     Route: 048
  2. INGREZZA [Suspect]
     Active Substance: VALBENAZINE
     Indication: CHRONIC TIC DISORDER
     Route: 048
     Dates: start: 20180323
  3. SIMVASTATIN. [Concomitant]
     Active Substance: SIMVASTATIN
     Indication: BLOOD CHOLESTEROL
     Route: 048
  4. GLYCOPYRROLATE. [Concomitant]
     Active Substance: GLYCOPYRROLATE
     Indication: SALIVARY HYPERSECRETION
     Dosage: WAS 1 ONCE A DAY AND NOW 1.5 TID
  5. ARICEPT [Concomitant]
     Active Substance: DONEPEZIL HYDROCHLORIDE
     Indication: DEMENTIA
  6. ARICEPT [Concomitant]
     Active Substance: DONEPEZIL HYDROCHLORIDE
     Indication: AMNESIA
     Route: 048
     Dates: start: 2016
  7. VITAMIN B12 [Concomitant]
     Active Substance: CYANOCOBALAMIN
  8. NEUPRO [Concomitant]
     Active Substance: ROTIGOTINE
     Indication: DEMENTIA
     Route: 048
  9. TYLENOL PM [Suspect]
     Active Substance: ACETAMINOPHEN\DIPHENHYDRAMINE
     Indication: PRODUCT USED FOR UNKNOWN INDICATION
  10. INGREZZA [Suspect]
     Active Substance: VALBENAZINE
     Indication: TARDIVE DYSKINESIA
     Route: 048
     Dates: start: 20171006, end: 20180116
  11. VITAMIN D [Concomitant]
     Active Substance: CHOLECALCIFEROL

REACTIONS (7)
  - Fatigue [Not Recovered/Not Resolved]
  - Drooling [Recovering/Resolving]
  - Off label use [Unknown]
  - Feeling abnormal [Unknown]
  - Memory impairment [Unknown]
  - Hypoacusis [Unknown]
  - Somnolence [Unknown]

NARRATIVE: CASE EVENT DATE: 2017
